FAERS Safety Report 15806407 (Version 2)
Quarter: 2019Q2

REPORT INFORMATION
  Report Type: Spontaneous
  Country: US (occurrence: US)
  Receive Date: 20190110
  Receipt Date: 20190503
  Transmission Date: 20190711
  Serious: No
  Sender: FDA-Public Use
  Company Number: US-PFIZER INC-2019010039

PATIENT
  Age: 80 Year
  Sex: Female
  Weight: 46 kg

DRUGS (7)
  1. ALLOPURINOL. [Concomitant]
     Active Substance: ALLOPURINOL
     Indication: RENAL DISORDER
     Dosage: 200 MG, 1X/DAY
  2. DOFETILIDE. [Suspect]
     Active Substance: DOFETILIDE
     Indication: HEART RATE ABNORMAL
     Dosage: 250 UG, 2X/DAY
     Route: 048
     Dates: start: 201812, end: 201902
  3. TIKOSYN [Suspect]
     Active Substance: DOFETILIDE
     Indication: HEART RATE ABNORMAL
     Dosage: UNK
     Dates: start: 201902
  4. DOFETILIDE. [Suspect]
     Active Substance: DOFETILIDE
     Indication: ATRIAL FIBRILLATION
  5. CALCITRIOL. [Concomitant]
     Active Substance: CALCITRIOL
     Indication: RENAL DISORDER
     Dosage: 0.25 UG, 1X/DAY
  6. ALLOPURINOL. [Concomitant]
     Active Substance: ALLOPURINOL
     Dosage: 100 MG, 2X/DAY
  7. XARELTO [Concomitant]
     Active Substance: RIVAROXABAN
     Indication: ANTICOAGULANT THERAPY
     Dosage: 15 MG, 1X/DAY

REACTIONS (2)
  - Therapeutic response unexpected [Recovering/Resolving]
  - Blood pressure decreased [Recovering/Resolving]

NARRATIVE: CASE EVENT DATE: 201812
